FAERS Safety Report 7416126-4 (Version None)
Quarter: 2011Q2

REPORT INFORMATION
  Report Type: 
  Country: None (occurrence: None)
  Receive Date: 20110406
  Receipt Date: 20110325
  Transmission Date: 20111010
  Serious: Yes (Death)
  Sender: FDA-Public Use
  Company Number: US-2011-10172

PATIENT
  Age: 65 Year
  Sex: Male

DRUGS (4)
  1. FLUDARA [Concomitant]
  2. BUSULFEX [Suspect]
     Indication: STEM CELL TRANSPLANT
     Dosage: 12.8 MG/KG, INTRAVENOUS
     Route: 042
  3. FILGRASTIM (FILGRASTIM) [Concomitant]
  4. G-CSF-PRIMING-ARA-C (G-CSF-PRIMING-ARA-C) [Concomitant]

REACTIONS (1)
  - THROMBOTIC MICROANGIOPATHY [None]
